FAERS Safety Report 8246669-5 (Version None)
Quarter: 2012Q1

REPORT INFORMATION
  Report Type: 
  Country: None (occurrence: None)
  Receive Date: 20120330
  Receipt Date: 20120321
  Transmission Date: 20120608
  Serious: Yes (Other)
  Sender: FDA-Public Use
  Company Number: CA-JNJFOC-20120310692

PATIENT
  Sex: Male
  Weight: 74.5 kg

DRUGS (2)
  1. REMICADE [Suspect]
     Indication: CROHN'S DISEASE
     Route: 042
     Dates: start: 20120131
  2. REMICADE [Suspect]
     Route: 042
     Dates: start: 20120321

REACTIONS (2)
  - ABDOMINAL PAIN [None]
  - ENDODONTIC PROCEDURE [None]
